FAERS Safety Report 6671739-2 (Version None)
Quarter: 2010Q2

REPORT INFORMATION
  Report Type: 
  Country: None (occurrence: None)
  Receive Date: 20100407
  Receipt Date: 20100324
  Transmission Date: 20101027
  Serious: Yes (Disabling)
  Sender: FDA-Public Use
  Company Number: GB-MYLANLABS-2010S1005102

PATIENT
  Age: 69 Year
  Sex: Female

DRUGS (6)
  1. LANSOPRAZOLE [Suspect]
     Indication: DYSPEPSIA
     Dates: end: 20091001
  2. AMLODIPINE [Concomitant]
     Indication: BLOOD PRESSURE MANAGEMENT
     Route: 048
  3. BENDROFLUMETHIAZIDE [Concomitant]
     Indication: BLOOD PRESSURE MANAGEMENT
     Route: 048
  4. CITALOPRAM HYDROBROMIDE [Concomitant]
     Indication: DEPRESSION
     Route: 048
  5. GLUCOSAMINE [Concomitant]
     Indication: ARTHRITIS
     Route: 048
  6. LOSARTAN POTASSIUM [Concomitant]
     Indication: BLOOD PRESSURE MANAGEMENT
     Route: 048

REACTIONS (1)
  - HEPATITIS [None]
